FAERS Safety Report 18078324 (Version 1)
Quarter: 2020Q3

REPORT INFORMATION
  Report Type: Spontaneous
  Country: US (occurrence: US)
  Receive Date: 20200728
  Receipt Date: 20200728
  Transmission Date: 20201103
  Serious: No
  Sender: FDA-Public Use
  Company Number: US-CELGENEUS-USA-20200706097

PATIENT
  Age: 80 Year
  Sex: Female
  Weight: 51.76 kg

DRUGS (2)
  1. THALOMID [Suspect]
     Active Substance: THALIDOMIDE
     Indication: OFF LABEL USE
  2. THALOMID [Suspect]
     Active Substance: THALIDOMIDE
     Indication: DERMATOMYOSITIS
     Dosage: 200 MILLIGRAM
     Route: 048
     Dates: start: 20200716

REACTIONS (4)
  - Balance disorder [Unknown]
  - Dry mouth [Unknown]
  - Somnolence [Unknown]
  - Tongue disorder [Unknown]

NARRATIVE: CASE EVENT DATE: 202007
